FAERS Safety Report 7719359-2 (Version None)
Quarter: 2011Q3

REPORT INFORMATION
  Report Type: 
  Country: None (occurrence: None)
  Receive Date: 20110824
  Receipt Date: 20110809
  Transmission Date: 20111222
  Serious: Yes (Death)
  Sender: FDA-Public Use
  Company Number: JPI-P-012961

PATIENT
  Age: 41 Year
  Sex: Female

DRUGS (11)
  1. XYREM [Suspect]
     Indication: NARCOLEPSY
     Dosage: 4.5 GM (2.25 GM,  2 IN 1 D) , ORAL ( , TITRATING DOSE) ORAL 9 GM (4.5 GM,2 IN 1 D) , ORAL
     Route: 048
     Dates: start: 20090201, end: 20090101
  2. XYREM [Suspect]
     Indication: NARCOLEPSY
     Dosage: 4.5 GM (2.25 GM,  2 IN 1 D) , ORAL ( , TITRATING DOSE) ORAL 9 GM (4.5 GM,2 IN 1 D) , ORAL
     Route: 048
     Dates: start: 20090101
  3. XYREM [Suspect]
     Indication: NARCOLEPSY
     Dosage: 4.5 GM (2.25 GM,  2 IN 1 D) , ORAL ( , TITRATING DOSE) ORAL 9 GM (4.5 GM,2 IN 1 D) , ORAL
     Route: 048
     Dates: start: 20090101, end: 20090101
  4. VITAMIN D [Concomitant]
  5. FLUTICASONE PROPIONATE [Concomitant]
  6. IBUPROFEN [Concomitant]
  7. PANTOPRAZOLE [Concomitant]
  8. MODAFINIL [Concomitant]
  9. ESCITALOPRAM [Concomitant]
  10. LANSOPRAZOLE [Concomitant]
  11. MULTI-VITAMIN [Concomitant]

REACTIONS (3)
  - MADAROSIS [None]
  - TACHYCARDIA [None]
  - URINE ODOUR ABNORMAL [None]
